APPROVED DRUG PRODUCT: MARPLAN
Active Ingredient: ISOCARBOXAZID
Strength: 10MG
Dosage Form/Route: TABLET;ORAL
Application: N011961 | Product #001
Applicant: LIFSA DRUGS LLC
Approved: Approved Prior to Jan 1, 1982 | RLD: Yes | RS: Yes | Type: RX